FAERS Safety Report 9321937 (Version 1)
Quarter: 2013Q2

REPORT INFORMATION
  Report Type: Spontaneous
  Country: US (occurrence: None)
  Receive Date: 20130528
  Receipt Date: 20130528
  Transmission Date: 20140414
  Serious: Yes (Other)
  Sender: FDA-Public Use
  Company Number: 2013P1006136

PATIENT
  Age: 27 Year
  Sex: Male

DRUGS (1)
  1. LITHIUM [Suspect]

REACTIONS (4)
  - Bradycardia [None]
  - Dizziness [None]
  - Confusional state [None]
  - Bundle branch block right [None]
